FAERS Safety Report 8330703-8 (Version None)
Quarter: 2012Q2

REPORT INFORMATION
  Report Type: 
  Country: None (occurrence: None)
  Receive Date: 20120502
  Receipt Date: 20120409
  Transmission Date: 20120825
  Serious: No
  Sender: FDA-Public Use
  Company Number: US-AMGEN-USASP2012022363

PATIENT
  Age: 54 Year
  Sex: Male

DRUGS (3)
  1. ENBREL [Suspect]
     Indication: OSTEOARTHRITIS
  2. ENBREL [Suspect]
     Indication: BONE DENSITY DECREASED
  3. ENBREL [Suspect]
     Indication: ANKYLOSING SPONDYLITIS
     Dosage: 50 MG, QWK
     Dates: start: 20030901, end: 20060101

REACTIONS (7)
  - DRY MOUTH [None]
  - COLONIC POLYP [None]
  - DENTAL CARIES [None]
  - ENAMEL ANOMALY [None]
  - SPINAL FRACTURE [None]
  - BONE DENSITY DECREASED [None]
  - BONE DISORDER [None]
